FAERS Safety Report 7395467-3 (Version None)
Quarter: 2011Q2

REPORT INFORMATION
  Report Type: 
  Country: None (occurrence: None)
  Receive Date: 20110405
  Receipt Date: 20110401
  Transmission Date: 20111010
  Serious: Yes (Congenital Anomaly, Other)
  Sender: FDA-Public Use
  Company Number: US-ABBOTT-10P-163-0690188-00

PATIENT

DRUGS (2)
  1. COMBIVIR [Suspect]
     Indication: DRUG EXPOSURE DURING PREGNANCY
     Route: 064
  2. KALETRA [Suspect]
     Indication: DRUG EXPOSURE DURING PREGNANCY
     Route: 064

REACTIONS (8)
  - CONGENITAL CENTRAL NERVOUS SYSTEM ANOMALY [None]
  - VENTRICULAR SEPTAL DEFECT [None]
  - CEREBELLAR HYPOPLASIA [None]
  - CORTICAL DYSPLASIA [None]
  - PREMATURE BABY [None]
  - DRUG EXPOSURE DURING PREGNANCY [None]
  - BRAIN MALFORMATION [None]
  - DANDY-WALKER SYNDROME [None]
